FAERS Safety Report 8222519 (Version 3)
Quarter: 2015Q2

REPORT INFORMATION
  Report Type: Spontaneous
  Country: US (occurrence: US)
  Receive Date: 20111102
  Receipt Date: 20150414
  Transmission Date: 20150821
  Serious: Yes (Disabling, Other)
  Sender: FDA-Public Use
  Company Number: US-ASTRAZENECA-2011SE64369

PATIENT
  Age: 62 Year
  Sex: Male

DRUGS (2)
  1. CRESTOR [Suspect]
     Active Substance: ROSUVASTATIN CALCIUM
     Route: 048
  2. CRESTOR [Suspect]
     Active Substance: ROSUVASTATIN CALCIUM
     Dosage: WITH A TOTAL DAILY DOSE OF 10 MG
     Route: 048

REACTIONS (2)
  - Accident at work [Unknown]
  - Muscle strain [Unknown]

NARRATIVE: CASE EVENT DATE: 2010
